FAERS Safety Report 7337860-0 (Version None)
Quarter: 2011Q1

REPORT INFORMATION
  Report Type: 
  Country: None (occurrence: None)
  Receive Date: 20110308
  Receipt Date: 20110303
  Transmission Date: 20110831
  Serious: Yes (Hospitalization)
  Sender: FDA-Public Use
  Company Number: GB-ROCHE-760010

PATIENT
  Sex: Female

DRUGS (11)
  1. BISOPROLOL FUMARATE [Concomitant]
     Dosage: REPORTED AS BISOPRLOL
     Route: 048
  2. CODEINE [Concomitant]
  3. OMEPRAZOLE [Concomitant]
     Indication: DYSPEPSIA
     Route: 048
  4. LEFLUNOMIDE [Concomitant]
  5. METHOTREXATE [Concomitant]
  6. RITUXIMAB [Suspect]
     Route: 065
     Dates: start: 20080101
  7. LEVOTHYROXINE SODIUM [Concomitant]
     Route: 048
  8. GTN SPRAY [Concomitant]
     Indication: CHEST PAIN
     Route: 060
  9. CLOPIDOGREL [Concomitant]
     Dosage: REPORTED AS CLOPIDGREL
  10. TOCILIZUMAB [Suspect]
     Indication: SERONEGATIVE ARTHRITIS
     Route: 042
     Dates: start: 20110110
  11. CO-CODAMOL [Concomitant]
     Indication: PAIN
     Dosage: 30/500
     Route: 048

REACTIONS (6)
  - POSTERIOR REVERSIBLE ENCEPHALOPATHY SYNDROME [None]
  - STAPHYLOCOCCAL BACTERAEMIA [None]
  - SEPSIS [None]
  - DRUG RESISTANCE [None]
  - NECK PAIN [None]
  - RASH [None]
